FAERS Safety Report 15607376 (Version 24)
Quarter: 2020Q4

REPORT INFORMATION
  Report Type: Report from Study
  Country: None (occurrence: IL)
  Receive Date: 20181112
  Receipt Date: 20201216
  Transmission Date: 20210113
  Serious: Yes (Hospitalization, Other)
  Sender: FDA-Public Use
  Company Number: IL-ABBVIE-18S-082-2544942-00

PATIENT
  Age: 65 Year
  Sex: Male

DRUGS (12)
  1. DUODOPA [Suspect]
     Active Substance: CARBIDOPA\LEVODOPA
     Dosage: DOSE DECREASE, MD 3ML,CD 4ML/HOUR,ND3.5ML/HOUR, ED 2ML
     Route: 050
  2. DUODOPA [Suspect]
     Active Substance: CARBIDOPA\LEVODOPA
     Indication: PARKINSON^S DISEASE
     Dosage: CMD- 13 ML, CFR- 3.8 ML/ HOUR, CND 2.3 ML, CED-1.5ML
     Route: 050
     Dates: start: 20180702, end: 2018
  3. DUODOPA [Suspect]
     Active Substance: CARBIDOPA\LEVODOPA
     Dosage: MD 5 ML, CONTINUOUS DAY DOSE 4.3 ML/HOUR,?CND 2.1 ML/HOUR, ED 2 ML
     Route: 050
  4. CANNABIS [Concomitant]
     Active Substance: CANNABIS SATIVA SUBSP. INDICA TOP
     Indication: SLEEP DISORDER
  5. DUODOPA [Suspect]
     Active Substance: CARBIDOPA\LEVODOPA
     Dosage: MD 5ML,CD 3.8ML/HOUR,ND2.3ML/HOUR, ED 1.5ML.
     Route: 050
  6. DUODOPA [Suspect]
     Active Substance: CARBIDOPA\LEVODOPA
     Dosage: MD 5 ML, CONTINUOUS DAY DOSE 4.5 ML/HOUR, CONTINUOUS?ND 4.3 ML/HOUR, ED 2 ML
     Route: 050
  7. DUODOPA [Suspect]
     Active Substance: CARBIDOPA\LEVODOPA
     Dosage: MD 5 ML, CONTI. DAY DOSE 4.5 ML/HR,CONTI. NIGHT DOSE 4.5 ML/HOUR, EXTRA DOSE 2.0 ML
     Route: 050
     Dates: start: 2018, end: 2018
  8. DUODOPA [Suspect]
     Active Substance: CARBIDOPA\LEVODOPA
     Dosage: MD 8ML,CD 3.8ML/HOUR,ND2.3ML/HOUR, ED 1.5ML.
     Route: 050
     Dates: start: 2018
  9. LAVENDER OIL [Concomitant]
     Active Substance: LAVENDER OIL
     Indication: FEELING OF RELAXATION
  10. DUODOPA [Suspect]
     Active Substance: CARBIDOPA\LEVODOPA
     Dosage: MD 3ML,CD 4ML/HOUR,ND3.5ML/HOUR, ED 2ML
     Route: 050
  11. DUODOPA [Suspect]
     Active Substance: CARBIDOPA\LEVODOPA
     Dosage: DOSE INCREASED
     Route: 050
  12. DUODOPA [Suspect]
     Active Substance: CARBIDOPA\LEVODOPA
     Dosage: CURRENT: MORNING DOSE 5 ML, CDR 4.5 ML/HOUR, CND 4.5 ML/HOUR, EXTRA DOSE 2.0 ML
     Route: 050

REACTIONS (42)
  - Infection [Unknown]
  - Foot operation [Recovered/Resolved]
  - Infrequent bowel movements [Unknown]
  - Dyskinesia [Recovered/Resolved]
  - Device connection issue [Unknown]
  - Volvulus [Unknown]
  - Metastases to liver [Unknown]
  - Diarrhoea [Unknown]
  - Constipation [Recovered/Resolved]
  - Restlessness [Unknown]
  - Patient uncooperative [Unknown]
  - Foot deformity [Recovered/Resolved]
  - Mass [Unknown]
  - Altered state of consciousness [Recovering/Resolving]
  - Stoma site discharge [Unknown]
  - Pain in extremity [Unknown]
  - Condition aggravated [Recovering/Resolving]
  - Cerebral haemorrhage [Unknown]
  - Dyskinesia [Recovered/Resolved]
  - Intentional medical device removal by patient [Unknown]
  - Hypophagia [Not Recovered/Not Resolved]
  - Intentional product misuse [Unknown]
  - Device occlusion [Recovered/Resolved]
  - On and off phenomenon [Not Recovered/Not Resolved]
  - Dyskinesia [Unknown]
  - Pain [Unknown]
  - Mental disorder [Unknown]
  - Fluid intake reduced [Not Recovered/Not Resolved]
  - Post procedural infection [Unknown]
  - Abdominal pain [Unknown]
  - Stoma site hypergranulation [Unknown]
  - General physical health deterioration [Unknown]
  - Staring [Not Recovered/Not Resolved]
  - On and off phenomenon [Recovered/Resolved]
  - Confusional state [Unknown]
  - Urinary tract infection [Not Recovered/Not Resolved]
  - On and off phenomenon [Unknown]
  - Hallucination [Unknown]
  - Intestinal obstruction [Unknown]
  - Urinary retention [Unknown]
  - Procedural pain [Unknown]
  - Device occlusion [Unknown]

NARRATIVE: CASE EVENT DATE: 2018
